FAERS Safety Report 24528924 (Version 2)
Quarter: 2024Q4

REPORT INFORMATION
  Report Type: Spontaneous
  Country: US (occurrence: US)
  Receive Date: 20241021
  Receipt Date: 20241209
  Transmission Date: 20250115
  Serious: Yes (Other)
  Sender: BAYER HEALTHCARE PHARMACEUTICALS INC.
  Company Number: US-BAYER-2024A150188

PATIENT
  Age: 27 Year
  Sex: Male

DRUGS (4)
  1. KOVALTRY [Suspect]
     Active Substance: ANTIHEMOPHILIC FACTOR, HUMAN RECOMBINANT
     Indication: Haemorrhage
     Dosage: 3036 UNITS/1097 UNITS , 4000 UNITS
  2. KOVALTRY [Suspect]
     Active Substance: ANTIHEMOPHILIC FACTOR, HUMAN RECOMBINANT
     Indication: Haemorrhage
     Dosage: HE USED 2 DOSES TO TREAT
  3. KOVALTRY [Suspect]
     Active Substance: ANTIHEMOPHILIC FACTOR, HUMAN RECOMBINANT
     Indication: Haemorrhage
     Dosage: KOVALTRY 1155/3046 UNITS: INFUSE 4200 UNITS (+/-10%)
  4. KOVALTRY [Suspect]
     Active Substance: ANTIHEMOPHILIC FACTOR, HUMAN RECOMBINANT
     Indication: Haemorrhage
     Dosage: 4 DF

REACTIONS (2)
  - Haemarthrosis [None]
  - Haemarthrosis [Recovered/Resolved]

NARRATIVE: CASE EVENT DATE: 20241014
